FAERS Safety Report 16304178 (Version 3)
Quarter: 2019Q3

REPORT INFORMATION
  Report Type: Report from Study
  Country: US (occurrence: US)
  Receive Date: 20190513
  Receipt Date: 20190808
  Transmission Date: 20191004
  Serious: Yes (Other)
  Sender: FDA-Public Use
  Company Number: US-TESARO-2019-TSO01785-US

PATIENT
  Sex: Female

DRUGS (1)
  1. VARUBI [Suspect]
     Active Substance: ROLAPITANT
     Indication: PRODUCT USED FOR UNKNOWN INDICATION
     Dosage: 180 MG, Q 4 WEEKS

REACTIONS (10)
  - Neuropathy peripheral [Unknown]
  - Weight increased [Unknown]
  - Anxiety [Unknown]
  - Fatigue [Unknown]
  - Nausea [Unknown]
  - Abdominal pain upper [Unknown]
  - Pollakiuria [Unknown]
  - Urinary incontinence [Unknown]
  - White blood cell count decreased [Not Recovered/Not Resolved]
  - Nocturia [Unknown]
